FAERS Safety Report 18414556 (Version 1)
Quarter: 2020Q4

REPORT INFORMATION
  Report Type: Spontaneous
  Country: ES (occurrence: ES)
  Receive Date: 20201022
  Receipt Date: 20201022
  Transmission Date: 20210114
  Serious: Yes (Death, Hospitalization)
  Sender: FDA-Public Use
  Company Number: ES-TEVA-2020-ES-1840220

PATIENT
  Age: 72 Year
  Sex: Female

DRUGS (4)
  1. LINEZOLID (1279A) [Suspect]
     Active Substance: LINEZOLID
     Indication: INFECTIVE EXACERBATION OF BRONCHIECTASIS
     Dosage: 600 MILLIGRAM DAILY; 600 MG DAY
     Route: 042
     Dates: start: 20200702, end: 20200707
  2. CEFTRIAXONA (501A) [Suspect]
     Active Substance: CEFTRIAXONE
     Indication: INFECTIVE EXACERBATION OF BRONCHIECTASIS
     Dosage: 2 GRAM DAILY; 2 GR DAY
     Route: 042
     Dates: start: 20200628, end: 20200701
  3. AZITROMICINA [Suspect]
     Active Substance: AZITHROMYCIN DIHYDRATE
     Indication: INFECTIVE EXACERBATION OF BRONCHIECTASIS
     Dosage: 500 MILLIGRAM DAILY; 500 MG DAY
     Route: 048
     Dates: start: 20200629, end: 20200701
  4. MEROPENEM (7155A) [Suspect]
     Active Substance: MEROPENEM
     Indication: INFECTIVE EXACERBATION OF BRONCHIECTASIS
     Dosage: 2 GRAM DAILY; 1GR/12H
     Route: 042
     Dates: start: 20200701, end: 20200707

REACTIONS (3)
  - Septic shock [Fatal]
  - Diarrhoea [Fatal]
  - Acute kidney injury [Fatal]

NARRATIVE: CASE EVENT DATE: 20200707
